FAERS Safety Report 13666609 (Version 1)
Quarter: 2017Q2

REPORT INFORMATION
  Report Type: Spontaneous
  Country: US (occurrence: US)
  Receive Date: 20170619
  Receipt Date: 20170619
  Transmission Date: 20170830
  Serious: Yes (Hospitalization)
  Sender: FDA-Public Use
  Company Number: US-ROCHE-717308

PATIENT
  Sex: Female

DRUGS (2)
  1. XELODA [Suspect]
     Active Substance: CAPECITABINE
     Indication: BREAST CANCER
     Dosage: DOSE: 1000/M2, FREQUENCY: QDX7
     Route: 048
     Dates: start: 20100217, end: 20100628
  2. TAXOTERE [Concomitant]
     Active Substance: DOCETAXEL
     Dosage: DOSE: 75/M2
     Route: 042
     Dates: start: 20100217, end: 20100628

REACTIONS (5)
  - Colitis [Unknown]
  - Nausea [Recovered/Resolved]
  - Vomiting [Recovered/Resolved]
  - Mucosal inflammation [Recovered/Resolved]
  - Diarrhoea [Recovered/Resolved]

NARRATIVE: CASE EVENT DATE: 201005
